FAERS Safety Report 9193765 (Version 3)
Quarter: 2013Q2

REPORT INFORMATION
  Report Type: Spontaneous
  Country: FR (occurrence: FR)
  Receive Date: 20130327
  Receipt Date: 20130422
  Transmission Date: 20140414
  Serious: Yes (Life-Threatening, Hospitalization, Other)
  Sender: FDA-Public Use
  Company Number: FR-TEVA-392375ISR

PATIENT
  Age: 74 Year
  Sex: Female
  Weight: 57 kg

DRUGS (7)
  1. RAMIPRIL RATIOPHARM 5 MG [Suspect]
     Indication: HYPERTENSION
     Dosage: 10 MILLIGRAM DAILY;
     Route: 048
     Dates: start: 20120905, end: 20120908
  2. RAMIPRIL RATIOPHARM 5 MG [Suspect]
     Dosage: 10 MILLIGRAM DAILY;
     Route: 048
     Dates: start: 201211, end: 201212
  3. TRIATEC [Suspect]
     Indication: HYPERTENSION
     Route: 048
     Dates: start: 2012
  4. ZANIDIP, COMPRIM? PELLICUL? [Suspect]
     Indication: HYPERTENSION
     Dosage: TAKEN IN THE EVENING
     Route: 048
     Dates: start: 2012, end: 20121203
  5. ZANIDIP, COMPRIM? PELLICUL? [Suspect]
     Dosage: 20 MILLIGRAM DAILY;
     Route: 048
     Dates: start: 20121203
  6. ELISOR [Concomitant]
     Indication: HYPERCHOLESTEROLAEMIA
     Route: 048
  7. KARDEGIC 75 MG [Concomitant]
     Dosage: 75 MILLIGRAM DAILY;
     Dates: start: 20090818, end: 20130130

REACTIONS (10)
  - Epistaxis [Recovered/Resolved]
  - Eye haemorrhage [Recovered/Resolved]
  - Mouth haemorrhage [Recovered/Resolved]
  - Hypertension [Recovered/Resolved]
  - Headache [Recovered/Resolved]
  - Psychological trauma [Unknown]
  - Insomnia [Unknown]
  - Fatigue [Recovered/Resolved]
  - Irritability [Recovered/Resolved]
  - Drug ineffective [Unknown]
